FAERS Safety Report 8408120-1 (Version None)
Quarter: 2012Q2

REPORT INFORMATION
  Report Type: 
  Country: None (occurrence: None)
  Receive Date: 20120604
  Receipt Date: 20120529
  Transmission Date: 20120825
  Serious: Yes (Hospitalization)
  Sender: FDA-Public Use
  Company Number: US-BAYER-2011-120222

PATIENT
  Age: 35 Year
  Sex: Female

DRUGS (10)
  1. LEXAPRO [Concomitant]
     Indication: ANTIDEPRESSANT THERAPY
     Dosage: 20 MG, UNK
     Dates: start: 20080901, end: 20100401
  2. NAPROXEN [Concomitant]
     Route: 048
  3. DROSPIRENONE AND ETHINYL ESTRADIOL [Suspect]
     Indication: CONTRACEPTION
     Dosage: UNK
     Dates: start: 20040101, end: 20040101
  4. YAZ [Suspect]
     Dosage: UNK
     Dates: start: 20080101, end: 20100101
  5. DROSPIRENONE AND ETHINYL ESTRADIOL [Suspect]
     Dosage: UNK
     Dates: start: 20080101, end: 20100101
  6. YAZ [Suspect]
     Indication: CONTRACEPTION
     Dosage: UNK
     Dates: start: 20040101, end: 20040101
  7. YASMIN [Suspect]
     Indication: CONTRACEPTION
     Dosage: UNK
     Dates: start: 20040101, end: 20040101
  8. YASMIN [Suspect]
     Dosage: UNK
     Dates: start: 20080101, end: 20100101
  9. LEXAPRO [Concomitant]
     Indication: ANXIETY
  10. BENTYL [Concomitant]
     Route: 048

REACTIONS (4)
  - INJURY [None]
  - CHOLECYSTITIS [None]
  - PAIN [None]
  - BILIARY DYSKINESIA [None]
